FAERS Safety Report 5225746-7 (Version None)
Quarter: 2007Q1

REPORT INFORMATION
  Report Type: 
  Country: None (occurrence: None)
  Receive Date: 20070131
  Receipt Date: 20070131
  Transmission Date: 20070707
  Serious: Yes (Other)
  Sender: FDA-Public Use
  Company Number: None

PATIENT
  Age: 87 Year
  Sex: Male
  Weight: 58.9676 kg

DRUGS (7)
  1. VANCOMYCIN HCL [Suspect]
     Indication: PNEUMONIA STAPHYLOCOCCAL
     Dosage: 1000 MG QD IV DRIP
     Route: 041
     Dates: start: 20070121, end: 20070124
  2. FLAGYL [Concomitant]
  3. DIGOXIN [Concomitant]
  4. NEURONTIN [Concomitant]
  5. LEVOTHYROXINE SODIUM [Concomitant]
  6. VANCOMYCIN HCL [Concomitant]
  7. ZYVOX [Concomitant]

REACTIONS (1)
  - THROMBOCYTOPENIA [None]
